FAERS Safety Report 5780668-8 (Version None)
Quarter: 2008Q2

REPORT INFORMATION
  Report Type: 
  Country: None (occurrence: None)
  Receive Date: 20080620
  Receipt Date: 20080618
  Transmission Date: 20081010
  Serious: Yes (Hospitalization)
  Sender: FDA-Public Use
  Company Number: US-BOEHRINGER INGELHEIM GMBH, GERMANY-2008-BP-08877BP

PATIENT
  Sex: Female

DRUGS (4)
  1. COMBIVENT [Suspect]
     Indication: CHRONIC OBSTRUCTIVE PULMONARY DISEASE
     Route: 055
     Dates: start: 20060101
  2. SYNTHROID [Concomitant]
     Indication: THYROID HORMONE REPLACEMENT THERAPY
  3. ACEFEX [Concomitant]
     Indication: DRUG THERAPY
  4. XANAX [Concomitant]

REACTIONS (9)
  - APHASIA [None]
  - CHILLS [None]
  - DRUG INEFFECTIVE [None]
  - DYSPNOEA [None]
  - LARYNGOSPASM [None]
  - PAIN [None]
  - PHARYNGOLARYNGEAL PAIN [None]
  - PNEUMONIA [None]
  - PYREXIA [None]
